FAERS Safety Report 9877619 (Version 2)
Quarter: 2014Q1

REPORT INFORMATION
  Report Type: Spontaneous
  Country: FR (occurrence: FR)
  Receive Date: 20140206
  Receipt Date: 20140311
  Transmission Date: 20141002
  Serious: Yes (Other)
  Sender: FDA-Public Use
  Company Number: PHHY2014FR013206

PATIENT
  Age: 44 Year
  Sex: Female
  Weight: 75 kg

DRUGS (2)
  1. GILENYA [Suspect]
     Indication: MULTIPLE SCLEROSIS
     Dosage: 0.5 MG, UNK
     Route: 048
     Dates: start: 20120626, end: 20140109
  2. TRINORDIOL [Concomitant]
     Indication: ORAL CONTRACEPTION
     Route: 048

REACTIONS (5)
  - Transaminases increased [Recovering/Resolving]
  - Hepatocellular injury [Recovering/Resolving]
  - Gamma-glutamyltransferase increased [Recovering/Resolving]
  - Eosinophilia [Recovered/Resolved]
  - Abdominal pain [Unknown]
